FAERS Safety Report 16563446 (Version 3)
Quarter: 2019Q3

REPORT INFORMATION
  Report Type: Report from Study
  Country: US (occurrence: US)
  Receive Date: 20190712
  Receipt Date: 20190916
  Transmission Date: 20191004
  Serious: Yes (Death)
  Sender: FDA-Public Use
  Company Number: US-BIOGEN-2019BI00761156

PATIENT
  Age: 68 Year
  Sex: Female

DRUGS (1)
  1. TYSABRI [Suspect]
     Active Substance: NATALIZUMAB
     Indication: MULTIPLE SCLEROSIS
     Route: 042
     Dates: start: 20120921, end: 20190606

REACTIONS (1)
  - Death [Fatal]

NARRATIVE: CASE EVENT DATE: 20190625
